FAERS Safety Report 4481849-6 (Version None)
Quarter: 2004Q3

REPORT INFORMATION
  Report Type: 
  Country: None (occurrence: None)
  Receive Date: 20040921
  Receipt Date: 20030722
  Transmission Date: 20050211
  Serious: Yes (Hospitalization, Other)
  Sender: FDA-Public Use
  Company Number: 163-20785-03060551

PATIENT
  Age: 69 Year
  Sex: Male

DRUGS (7)
  1. THALOMID [Suspect]
     Indication: MULTIPLE MYELOMA
     Dosage: 50MG-100MG, DAILY, ORAL
     Route: 048
     Dates: start: 20020101
  2. OXYCODONE (OXYCODONE) [Concomitant]
  3. NEXIUM [Concomitant]
  4. COUMADIN [Concomitant]
  5. ZYRTEC [Concomitant]
  6. SENOKOT [Concomitant]
  7. ARANESP [Concomitant]

REACTIONS (4)
  - CELLULITIS [None]
  - PYREXIA [None]
  - THROMBOSIS [None]
  - URINARY RETENTION [None]
